FAERS Safety Report 10865939 (Version 9)
Quarter: 2016Q2

REPORT INFORMATION
  Report Type: Spontaneous
  Country: US (occurrence: US)
  Receive Date: 20150224
  Receipt Date: 20160504
  Transmission Date: 20160815
  Serious: Yes (Other)
  Sender: FDA-Public Use
  Company Number: US-PFIZER INC-2015063613

PATIENT
  Age: 70 Year
  Sex: Female
  Weight: 109 kg

DRUGS (10)
  1. SUTENT [Suspect]
     Active Substance: SUNITINIB MALATE
     Indication: METASTATIC RENAL CELL CARCINOMA
     Dosage: 50 MG, CYCLIC (2 WEEKS ON/1 WEEK OFF)
  2. FISH OIL [Concomitant]
     Active Substance: FISH OIL
     Dosage: UNK
  3. SUTENT [Suspect]
     Active Substance: SUNITINIB MALATE
     Dosage: 25 MG, CYCLIC (2 WEEKS ON AND 1 WEEK OFF)
     Dates: start: 20150310
  4. LEVOTHYROXINE SODIUM. [Concomitant]
     Active Substance: LEVOTHYROXINE SODIUM
     Dosage: (75 ?G, 1 DAILY)
  5. ZYRTEC [Concomitant]
     Active Substance: CETIRIZINE HYDROCHLORIDE
     Dosage: 10 MG, AS NEEDED
  6. AMLODIPINE [Concomitant]
     Active Substance: AMLODIPINE BESYLATE
     Dosage: 5 MG, 1X/DAY
  7. LOVASTATIN. [Concomitant]
     Active Substance: LOVASTATIN
     Dosage: 20 MG, 1X/DAY
  8. LOMOTIL [Concomitant]
     Active Substance: ATROPINE SULFATE\DIPHENOXYLATE HYDROCHLORIDE
     Dosage: UNK
  9. SUTENT [Suspect]
     Active Substance: SUNITINIB MALATE
     Dosage: 37.5 MG, UNK
     Dates: start: 20131230
  10. DEXILANT [Concomitant]
     Active Substance: DEXLANSOPRAZOLE
     Dosage: 60 MG, 1X/DAY

REACTIONS (30)
  - Haemorrhoids [Unknown]
  - Thyroid disorder [Unknown]
  - Hypertension [Unknown]
  - Abnormal faeces [Unknown]
  - Hypoaesthesia [Unknown]
  - Weight decreased [Unknown]
  - Urinary tract infection [Unknown]
  - Diarrhoea [Unknown]
  - Chromaturia [Unknown]
  - Nasopharyngitis [Recovering/Resolving]
  - Blood uric acid increased [Not Recovered/Not Resolved]
  - Urethritis noninfective [Unknown]
  - Nausea [Unknown]
  - Palmar-plantar erythrodysaesthesia syndrome [Unknown]
  - Asthenia [Unknown]
  - Paraesthesia [Unknown]
  - Pain [Unknown]
  - Dry skin [Unknown]
  - Insomnia [Unknown]
  - Temperature intolerance [Unknown]
  - Cough [Unknown]
  - Cataract [Not Recovered/Not Resolved]
  - Gout [Not Recovered/Not Resolved]
  - Weight increased [Unknown]
  - Stomatitis [Unknown]
  - Cataract [Not Recovered/Not Resolved]
  - Fatigue [Unknown]
  - Hot flush [Unknown]
  - Blood glucose abnormal [Unknown]
  - Haemorrhage [Unknown]

NARRATIVE: CASE EVENT DATE: 20140708
